FAERS Safety Report 21347801 (Version 1)
Quarter: 2022Q3

REPORT INFORMATION
  Report Type: Spontaneous
  Country: US (occurrence: US)
  Receive Date: 20220919
  Receipt Date: 20220919
  Transmission Date: 20221026
  Serious: No
  Sender: FDA-Public Use
  Company Number: US-AUROBINDO-AUR-APL-2022-005135

PATIENT
  Age: 27 Year
  Sex: Male
  Weight: 86 kg

DRUGS (1)
  1. ALPRAZOLAM [Suspect]
     Active Substance: ALPRAZOLAM
     Indication: Psychomotor hyperactivity
     Dosage: 1 DOSAGE FORM, 3 TIMES A DAY
     Route: 048

REACTIONS (6)
  - Drug ineffective [Unknown]
  - Product taste abnormal [Unknown]
  - Product formulation issue [Unknown]
  - Product coating issue [Unknown]
  - Product substitution issue [Unknown]
  - Product solubility abnormal [Unknown]
